FAERS Safety Report 7609623-X (Version None)
Quarter: 2011Q3

REPORT INFORMATION
  Report Type: 
  Country: None (occurrence: None)
  Receive Date: 20110714
  Receipt Date: 20110704
  Transmission Date: 20111222
  Serious: Yes (Other)
  Sender: FDA-Public Use
  Company Number: PHHY2011DE59540

PATIENT
  Age: 78 Year
  Sex: Female

DRUGS (3)
  1. ZOMETA [Suspect]
     Route: 042
     Dates: start: 20060901, end: 20080301
  2. IBANDRONATE SODIUM [Suspect]
     Dosage: UNK
     Dates: start: 20080401, end: 20080701
  3. CORTISONE ACETATE [Concomitant]

REACTIONS (1)
  - OSTEONECROSIS OF JAW [None]
